FAERS Safety Report 16715067 (Version 4)
Quarter: 2019Q4

REPORT INFORMATION
  Report Type: Spontaneous
  Country: US (occurrence: US)
  Receive Date: 20190819
  Receipt Date: 20191126
  Transmission Date: 20200122
  Serious: Yes (Other)
  Sender: FDA-Public Use
  Company Number: US-PFIZER INC-2019352552

PATIENT
  Age: 85 Year
  Sex: Female
  Weight: 83.45 kg

DRUGS (1)
  1. PHENYTOIN SODIUM. [Suspect]
     Active Substance: PHENYTOIN SODIUM
     Indication: SEIZURE
     Dosage: 300 MG, DAILY(3-100MG CAPSULES TAKEN BY MOUTH DAILY)
     Route: 048

REACTIONS (5)
  - Loss of consciousness [Unknown]
  - Drug level decreased [Unknown]
  - Drug ineffective [Unknown]
  - Deafness [Unknown]
  - Feeling abnormal [Unknown]
